FAERS Safety Report 10070329 (Version 4)
Quarter: 2014Q3

REPORT INFORMATION
  Report Type: Spontaneous
  Country: US (occurrence: US)
  Receive Date: 20140410
  Receipt Date: 20140724
  Transmission Date: 20150326
  Serious: Yes (Hospitalization)
  Sender: FDA-Public Use
  Company Number: US-BAYER-2014-053535

PATIENT
  Age: 40 Year
  Sex: Female
  Weight: 109 kg

DRUGS (6)
  1. NAPROSYN [Concomitant]
     Active Substance: NAPROXEN
  2. ZYRTEC [Concomitant]
     Active Substance: CETIRIZINE HYDROCHLORIDE
  3. ALBUTEROL. [Concomitant]
     Active Substance: ALBUTEROL
  4. MIRENA [Suspect]
     Active Substance: LEVONORGESTREL
     Indication: CONTRACEPTION
     Dosage: 20 MCG/24HR, CONT
     Route: 015
     Dates: start: 200612, end: 20120326
  5. TRAMADOL [Concomitant]
     Active Substance: TRAMADOL
     Route: 048
  6. NAPROXEN. [Concomitant]
     Active Substance: NAPROXEN
     Route: 048

REACTIONS (7)
  - Post procedural discomfort [Not Recovered/Not Resolved]
  - Procedural pain [Not Recovered/Not Resolved]
  - Device misuse [None]
  - Uterine perforation [None]
  - Injury [None]
  - Device issue [None]
  - Medical device pain [None]

NARRATIVE: CASE EVENT DATE: 200711
